FAERS Safety Report 22665642 (Version 3)
Quarter: 2024Q1

REPORT INFORMATION
  Report Type: Spontaneous
  Country: BY (occurrence: BY)
  Receive Date: 20230703
  Receipt Date: 20240226
  Transmission Date: 20240410
  Serious: Yes (Life-Threatening)
  Sender: FDA-Public Use
  Company Number: BY-JNJFOC-20230660110

PATIENT
  Age: 44 Year
  Sex: Female
  Weight: 61 kg

DRUGS (16)
  1. SIRTURO [Suspect]
     Active Substance: BEDAQUILINE FUMARATE
     Indication: Product used for unknown indication
     Dosage: DRUG INTERRUPTED FROM 24-JUN-2023
     Route: 048
     Dates: start: 20230511, end: 20230624
  2. SIRTURO [Suspect]
     Active Substance: BEDAQUILINE FUMARATE
     Route: 048
     Dates: start: 20230624, end: 20230629
  3. SIRTURO [Suspect]
     Active Substance: BEDAQUILINE FUMARATE
     Route: 048
     Dates: start: 20230629, end: 20231127
  4. PRETOMANID [Suspect]
     Active Substance: PRETOMANID
     Indication: Product used for unknown indication
     Dosage: DRUG INTERRUPTED FROM 24-JUN-2023
     Route: 048
     Dates: start: 20230607, end: 20230624
  5. PRETOMANID [Suspect]
     Active Substance: PRETOMANID
     Route: 048
     Dates: start: 20230624, end: 20230629
  6. PRETOMANID [Suspect]
     Active Substance: PRETOMANID
     Route: 048
     Dates: start: 20230629, end: 20231127
  7. LINEZOLID [Suspect]
     Active Substance: LINEZOLID
     Indication: Product used for unknown indication
     Dosage: DRUG INTERRUPTED FROM 24-JUN-2023
     Route: 048
     Dates: start: 20230511, end: 20230624
  8. LINEZOLID [Suspect]
     Active Substance: LINEZOLID
     Route: 048
     Dates: start: 20230624, end: 20230629
  9. LINEZOLID [Suspect]
     Active Substance: LINEZOLID
     Route: 048
     Dates: start: 20230629, end: 20231127
  10. MOXIFLOXACIN [Suspect]
     Active Substance: MOXIFLOXACIN
     Indication: Product used for unknown indication
     Dosage: DRUG INTERRUPTED FROM 24-JUN-2023
     Route: 048
     Dates: start: 20230607, end: 20230624
  11. MOXIFLOXACIN [Suspect]
     Active Substance: MOXIFLOXACIN
     Route: 048
     Dates: start: 20230624, end: 20230629
  12. MOXIFLOXACIN [Suspect]
     Active Substance: MOXIFLOXACIN
     Route: 048
     Dates: start: 20230629, end: 20231127
  13. LEVOFLOXACIN [Suspect]
     Active Substance: LEVOFLOXACIN
     Indication: Product used for unknown indication
     Route: 065
     Dates: start: 20230511
  14. CYCLOSERINE [Suspect]
     Active Substance: CYCLOSERINE
     Indication: Product used for unknown indication
     Route: 065
     Dates: start: 20230511
  15. CLOFAZIMINE [Suspect]
     Active Substance: CLOFAZIMINE
     Indication: Product used for unknown indication
     Route: 065
     Dates: start: 20230511
  16. PYRIDOXINE [Concomitant]
     Active Substance: PYRIDOXINE
     Indication: Prophylaxis
     Route: 048
     Dates: start: 20230613, end: 20231127

REACTIONS (3)
  - Aspartate aminotransferase increased [Recovered/Resolved]
  - Alanine aminotransferase increased [Unknown]
  - Blood bilirubin increased [Unknown]

NARRATIVE: CASE EVENT DATE: 20230622
